FAERS Safety Report 17068855 (Version 3)
Quarter: 2019Q4

REPORT INFORMATION
  Report Type: Spontaneous
  Country: US (occurrence: US)
  Receive Date: 20191124
  Receipt Date: 20191202
  Transmission Date: 20200122
  Serious: Yes (Hospitalization)
  Sender: FDA-Public Use
  Company Number: US-CELGENEUS-USA-20191107303

PATIENT
  Age: 86 Year
  Sex: Male
  Weight: 141.83 kg

DRUGS (36)
  1. AZACITIDINE. [Suspect]
     Active Substance: AZACITIDINE
     Indication: ACUTE MYELOID LEUKAEMIA
     Dosage: 75 MILLIGRAM/SQ. METER
     Route: 058
     Dates: start: 20190923, end: 20190930
  2. COLCHICINE. [Concomitant]
     Active Substance: COLCHICINE
     Indication: GOUT
     Dosage: .6 MILLIGRAM
     Route: 048
     Dates: start: 20191003, end: 20191003
  3. SODIUM CHLORIDE. [Concomitant]
     Active Substance: SODIUM CHLORIDE
     Dosage: 1000 MILLILITER
     Route: 041
     Dates: start: 20190928, end: 20191028
  4. HYDRATION [Concomitant]
     Active Substance: UNSPECIFIED INGREDIENT
     Dosage: 1500 MILLILITER
     Route: 048
     Dates: start: 20190924, end: 20190924
  5. TLS PROPHYLAXIS [Concomitant]
     Indication: PROPHYLAXIS
     Dosage: 300 MILLIGRAM
     Route: 048
     Dates: start: 20190918
  6. RASBURICASE [Concomitant]
     Active Substance: RASBURICASE
     Indication: HYPERURICAEMIA
     Dosage: 6 MILLIGRAM
     Route: 041
     Dates: start: 20190925, end: 20190925
  7. FEBUXOSTAT. [Concomitant]
     Active Substance: FEBUXOSTAT
     Indication: GOUT
     Dosage: 40 MILLIGRAM
     Route: 048
     Dates: start: 20191025
  8. SODIUM CHLORIDE. [Concomitant]
     Active Substance: SODIUM CHLORIDE
     Indication: TUMOUR LYSIS SYNDROME
     Dosage: 1000 MILLILITER
     Route: 041
     Dates: start: 20190925, end: 20191025
  9. AMLODIPINE [Concomitant]
     Active Substance: AMLODIPINE BESYLATE
     Indication: HYPERTENSION
     Dosage: 10 MILLIGRAM
     Route: 048
     Dates: start: 1990
  10. LISINOPRIL. [Concomitant]
     Active Substance: LISINOPRIL
     Indication: HYPERTENSION
     Dosage: 20 MILLIGRAM
     Route: 048
     Dates: start: 1990
  11. METFORMIN [Concomitant]
     Active Substance: METFORMIN HYDROCHLORIDE
     Indication: DIABETES MELLITUS
     Dosage: 1000 MILLIGRAM
     Route: 048
     Dates: start: 1995
  12. GLIPIZIDE. [Concomitant]
     Active Substance: GLIPIZIDE
     Indication: DIABETES MELLITUS
     Dosage: 20 MILLIGRAM
     Route: 048
     Dates: start: 1995
  13. ACYCLOVIR. [Concomitant]
     Active Substance: ACYCLOVIR
     Indication: ANTIVIRAL PROPHYLAXIS
     Dosage: 1600 MILLIGRAM
     Route: 048
     Dates: start: 20190911
  14. LEVOFLOXACIN. [Concomitant]
     Active Substance: LEVOFLOXACIN
     Indication: INFECTION PROPHYLAXIS
     Dosage: 500 MILLIGRAM
     Route: 048
     Dates: start: 20190911
  15. SEVELAMER [Concomitant]
     Active Substance: SEVELAMER
     Indication: HYPERPHOSPHATAEMIA
     Dosage: 2400 MILLIGRAM
     Route: 048
     Dates: start: 20190925
  16. ONDANSETRON [Concomitant]
     Active Substance: ONDANSETRON
     Indication: NAUSEA
     Dosage: 8 MILLIGRAM
     Route: 048
     Dates: start: 20190925
  17. SIMVASTATIN. [Concomitant]
     Active Substance: SIMVASTATIN
     Indication: DYSLIPIDAEMIA
     Dosage: 10 MILLIGRAM
     Route: 048
     Dates: start: 1995
  18. ALLOPURINOL. [Concomitant]
     Active Substance: ALLOPURINOL
     Indication: PRODUCT USED FOR UNKNOWN INDICATION
     Route: 065
  19. HYDRATION [Concomitant]
     Active Substance: UNSPECIFIED INGREDIENT
     Indication: PROPHYLAXIS
     Dosage: 1000 MILLILITER
     Route: 048
     Dates: start: 20190923, end: 20190923
  20. PREDNISONE. [Concomitant]
     Active Substance: PREDNISONE
     Dosage: 30 MILLIGRAM
     Route: 048
     Dates: start: 20190925, end: 20190926
  21. PREDNISONE. [Concomitant]
     Active Substance: PREDNISONE
     Route: 048
     Dates: start: 20191001, end: 20191007
  22. SODIUM CHLORIDE. [Concomitant]
     Active Substance: SODIUM CHLORIDE
     Dosage: 1000 MILLILITER
     Route: 041
     Dates: start: 20191003, end: 20191003
  23. VENETOCLAX. [Suspect]
     Active Substance: VENETOCLAX
     Indication: ACUTE MYELOID LEUKAEMIA
     Dosage: 100 MILLIGRAM
     Route: 048
     Dates: start: 20190923, end: 20190923
  24. VENETOCLAX. [Suspect]
     Active Substance: VENETOCLAX
     Dosage: 200 MILLIGRAM
     Route: 048
     Dates: start: 20190924, end: 20190924
  25. VENETOCLAX. [Suspect]
     Active Substance: VENETOCLAX
     Dosage: 400 MILLIGRAM
     Route: 048
     Dates: start: 20190927, end: 20191027
  26. HYDRATION [Concomitant]
     Active Substance: UNSPECIFIED INGREDIENT
     Dosage: 2000 MILLILITER
     Route: 048
     Dates: start: 20190925, end: 20190925
  27. COMPAZINE [Concomitant]
     Active Substance: PROCHLORPERAZINE MALEATE
     Indication: PREMEDICATION
     Dosage: 10 MILLIGRAM
     Route: 048
     Dates: start: 20190923, end: 20190924
  28. KAYEXALATE [Concomitant]
     Active Substance: SODIUM POLYSTYRENE SULFONATE
     Indication: HYPERKALAEMIA
     Dosage: 30 MILLIGRAM
     Route: 041
     Dates: start: 20190925
  29. KYTRIL [Concomitant]
     Active Substance: GRANISETRON HYDROCHLORIDE
     Indication: VOMITING
  30. SODIUM CHLORIDE. [Concomitant]
     Active Substance: SODIUM CHLORIDE
     Dosage: 2000 MILLILITER
     Route: 041
     Dates: start: 20190926, end: 20191027
  31. SODIUM CHLORIDE. [Concomitant]
     Active Substance: SODIUM CHLORIDE
     Dosage: 2000 MILLILITER
     Route: 041
     Dates: start: 20190929, end: 20191002
  32. TAMSULOSIN [Concomitant]
     Active Substance: TAMSULOSIN
     Indication: BENIGN PROSTATIC HYPERPLASIA
     Dosage: .4 MILLIGRAM
     Route: 048
     Dates: start: 1995
  33. PREDNISONE. [Concomitant]
     Active Substance: PREDNISONE
     Indication: GOUT
     Dosage: 5 MILLIGRAM
     Route: 048
     Dates: start: 20190918, end: 20190924
  34. KYTRIL [Concomitant]
     Active Substance: GRANISETRON HYDROCHLORIDE
     Indication: NAUSEA
     Dosage: 1 MILLIGRAM
     Route: 041
     Dates: start: 20190923, end: 20190924
  35. FUROSIMIDE [Concomitant]
     Active Substance: FUROSEMIDE
     Indication: HYPERKALAEMIA
     Route: 041
     Dates: start: 20190924
  36. AMOXICILLIN. [Concomitant]
     Active Substance: AMOXICILLIN
     Indication: INFECTION PROPHYLAXIS
     Dosage: 1000 MILLIGRAM
     Route: 048
     Dates: start: 20191003

REACTIONS (1)
  - Hypotension [Recovered/Resolved]

NARRATIVE: CASE EVENT DATE: 20191108
